FAERS Safety Report 7410316-2 (Version None)
Quarter: 2011Q2

REPORT INFORMATION
  Report Type: 
  Country: None (occurrence: None)
  Receive Date: 20110412
  Receipt Date: 20110225
  Transmission Date: 20111010
  Serious: Yes (Life-Threatening)
  Sender: FDA-Public Use
  Company Number: PHHY2011US02794

PATIENT
  Sex: Male
  Weight: 102 kg

DRUGS (8)
  1. EXTAVIA [Suspect]
     Dosage: UNK UNK, UNK
     Route: 058
     Dates: start: 20110116
  2. EXTAVIA [Suspect]
     Dosage: 0.25 MG, QOD
     Route: 058
     Dates: start: 20110207
  3. FLOMAX ^CSL^ [Concomitant]
     Dosage: UNK
  4. VALIUM [Concomitant]
     Indication: SLEEP DISORDER
     Dosage: UNK
  5. EXTAVIA [Suspect]
     Indication: MULTIPLE SCLEROSIS
     Dosage: 0.25 MG, QOD
     Route: 058
     Dates: start: 20110108, end: 20110109
  6. EXTAVIA [Suspect]
     Dosage: 0.187 MG, QOD
     Route: 058
  7. BACLOFEN [Concomitant]
     Indication: MUSCLE SPASTICITY
     Dosage: 10 MG, AT NIGHT
  8. PROVIGIL [Concomitant]
     Indication: FATIGUE
     Dosage: UNK

REACTIONS (10)
  - INJECTION SITE PAIN [None]
  - FEELING ABNORMAL [None]
  - ORAL HERPES [None]
  - HEADACHE [None]
  - FEELING HOT [None]
  - PAIN [None]
  - MUSCULAR WEAKNESS [None]
  - FATIGUE [None]
  - INCORRECT DOSE ADMINISTERED [None]
  - INFLUENZA LIKE ILLNESS [None]
